FAERS Safety Report 11443927 (Version 2)
Quarter: 2015Q3

REPORT INFORMATION
  Report Type: Report from Study
  Country: US (occurrence: US)
  Receive Date: 20150901
  Receipt Date: 20150918
  Transmission Date: 20151125
  Serious: No
  Sender: FDA-Public Use
  Company Number: US-AMGEN-USASP2015088758

PATIENT
  Age: 55 Year
  Sex: Female

DRUGS (5)
  1. AMITRIPTYLINE HCL [Concomitant]
     Active Substance: AMITRIPTYLINE
     Dosage: 100 MG, UNK
  2. PREDNISONE. [Concomitant]
     Active Substance: PREDNISONE
     Dosage: 5 MG, UNK
  3. METHOTREXATE [Concomitant]
     Active Substance: METHOTREXATE
     Dosage: 2.5 MG, UNK
  4. ENBREL [Suspect]
     Active Substance: ETANERCEPT
     Indication: RHEUMATOID ARTHRITIS
     Dosage: 50 MG, QWK
     Route: 058
     Dates: start: 20150721
  5. FOLIC ACID. [Concomitant]
     Active Substance: FOLIC ACID
     Dosage: 0.4 MG, UNK

REACTIONS (6)
  - Injection site reaction [Unknown]
  - Injection site rash [Recovered/Resolved]
  - Injection site pruritus [Recovered/Resolved]
  - Injection site bruising [Unknown]
  - Arthropod sting [Recovered/Resolved]
  - Wrong technique in product usage process [Unknown]

NARRATIVE: CASE EVENT DATE: 20150812
